FAERS Safety Report 12221032 (Version 1)
Quarter: 2016Q1

REPORT INFORMATION
  Report Type: Spontaneous
  Country: US (occurrence: US)
  Receive Date: 20160330
  Receipt Date: 20160330
  Transmission Date: 20160526
  Serious: No
  Sender: FDA-Public Use
  Company Number: US-WATSON-2015-22669

PATIENT
  Age: 49 Year
  Sex: Female
  Weight: 74 kg

DRUGS (3)
  1. HYDROXYZINE (WATSON LABORATORIES) [Suspect]
     Active Substance: HYDROXYZINE HYDROCHLORIDE
     Indication: PRURITUS
     Dosage: 25 MG, QID
     Route: 048
     Dates: start: 20150817
  2. T/GEL THERAPEUTIC SHAMPOO [Concomitant]
     Indication: PRODUCT USED FOR UNKNOWN INDICATION
     Dosage: UNK UNK, 2/WEEK
     Route: 061
  3. SULFAMETHOXAZOLE/TRIMETHOPRIM UNKNOWN STRENGTH (WATSON LABORATORIES) [Concomitant]
     Indication: ANTIBIOTIC THERAPY
     Dosage: 2 DF, DAILY
     Route: 048
     Dates: start: 20150817, end: 20150821

REACTIONS (1)
  - Antisocial behaviour [Unknown]
